FAERS Safety Report 9121268 (Version 3)
Quarter: 2014Q2

REPORT INFORMATION
  Report Type: Report from Study
  Country: US (occurrence: US)
  Receive Date: 20130225
  Receipt Date: 20140509
  Transmission Date: 20141212
  Serious: Yes (Hospitalization)
  Sender: FDA-Public Use
  Company Number: US-SANOFI-AVENTIS-2013SA003011

PATIENT
  Age: 68 Year
  Sex: Male

DRUGS (21)
  1. LOVENOX [Suspect]
     Indication: DEEP VEIN THROMBOSIS
     Route: 058
     Dates: start: 20130101, end: 20130103
  2. IPILIMUMAB [Suspect]
     Indication: MALIGNANT MELANOMA
     Route: 042
     Dates: start: 20120828, end: 20121106
  3. INFLUENZA VACCINE [Concomitant]
  4. LOMOTIL [Concomitant]
  5. LOPERAMIDE HYDROCHLORIDE [Concomitant]
  6. DIPHENHYDRAMINE [Concomitant]
  7. MESALAMINE [Concomitant]
  8. MESALAMINE [Concomitant]
  9. ATORVASTATIN CALCIUM [Concomitant]
     Dates: start: 20091120
  10. TAMSULOSIN [Concomitant]
     Dates: start: 20091118, end: 20121121
  11. CARAFATE [Concomitant]
  12. LIDOCAINE [Concomitant]
  13. POTASSIUM CHLORIDE [Concomitant]
  14. PREDNISOLONE [Concomitant]
  15. PREDNISONE [Concomitant]
  16. OMEPRAZOLE [Concomitant]
  17. FLAGYL [Concomitant]
  18. DULCOLAX [Concomitant]
  19. PROTONIX [Concomitant]
  20. FLUCONAZOLE [Concomitant]
     Indication: ORAL CANDIDIASIS
  21. NYSTATIN [Concomitant]

REACTIONS (5)
  - Colitis ulcerative [Recovered/Resolved with Sequelae]
  - Clostridium difficile colitis [Unknown]
  - Colitis [Unknown]
  - Gastrointestinal haemorrhage [Unknown]
  - Deep vein thrombosis [Recovered/Resolved]
